FAERS Safety Report 10503182 (Version 1)
Quarter: 2014Q4

REPORT INFORMATION
  Report Type: Spontaneous
  Country: ZA (occurrence: ZA)
  Receive Date: 20141007
  Receipt Date: 20141007
  Transmission Date: 20150528
  Serious: Yes (Death, Hospitalization)
  Sender: FDA-Public Use
  Company Number: PHHY2014ZA130587

PATIENT
  Age: 28 Year
  Sex: Male

DRUGS (7)
  1. RISPERIDONE. [Concomitant]
     Active Substance: RISPERIDONE
     Dosage: 3 MG, DAILY
  2. SODIUM VALPROATE [Concomitant]
     Active Substance: VALPROATE SODIUM
     Dosage: 500 MG, BID
  3. LAMIVUDINE. [Concomitant]
     Active Substance: LAMIVUDINE
     Dosage: 150 MG, BID
  4. ZIDOVUDINE. [Concomitant]
     Active Substance: ZIDOVUDINE
     Dosage: 300 MG, BID
  5. NEVIRAPINE. [Suspect]
     Active Substance: NEVIRAPINE
     Dosage: 200 MG, BID
  6. NEVIRAPINE. [Suspect]
     Active Substance: NEVIRAPINE
     Dosage: 200 MG, DAILY
  7. PENICILLINA [Concomitant]

REACTIONS (5)
  - Stevens-Johnson syndrome [Unknown]
  - Rash [Recovered/Resolved]
  - Infection [Fatal]
  - Renal failure [Fatal]
  - Toxic epidermal necrolysis [Unknown]
